FAERS Safety Report 25297590 (Version 1)
Quarter: 2025Q2

REPORT INFORMATION
  Report Type: Report from Study
  Country: SE (occurrence: SE)
  Receive Date: 20250511
  Receipt Date: 20250511
  Transmission Date: 20250717
  Serious: Yes (Hospitalization)
  Sender: ABBVIE
  Company Number: SE-ABBVIE-6275130

PATIENT
  Age: 75 Year
  Sex: Female
  Weight: 55 kg

DRUGS (2)
  1. FOSCARBIDOPA\FOSLEVODOPA [Suspect]
     Active Substance: FOSCARBIDOPA\FOSLEVODOPA
     Indication: Parkinson^s disease
     Route: 058
     Dates: start: 20250414, end: 20250504
  2. MIRTAZAPINE [Concomitant]
     Active Substance: MIRTAZAPINE
     Indication: Product used for unknown indication

REACTIONS (4)
  - Confusional state [Recovering/Resolving]
  - Psychomotor hyperactivity [Recovering/Resolving]
  - Hallucination [Unknown]
  - Hypophagia [Unknown]

NARRATIVE: CASE EVENT DATE: 20250101
